FAERS Safety Report 7867932-3 (Version None)
Quarter: 2011Q4

REPORT INFORMATION
  Report Type: 
  Country: None (occurrence: None)
  Receive Date: 20111028
  Receipt Date: 20111018
  Transmission Date: 20120403
  Serious: Yes (Hospitalization)
  Sender: FDA-Public Use
  Company Number: PHHO2011PL16087

PATIENT
  Sex: Female
  Weight: 52.5 kg

DRUGS (1)
  1. FTY [Suspect]
     Indication: MULTIPLE SCLEROSIS
     Dosage: 0.5 MG, QD
     Route: 048
     Dates: start: 20110323, end: 20110919

REACTIONS (2)
  - MULTIPLE SCLEROSIS RELAPSE [None]
  - PULMONARY TUBERCULOSIS [None]
